FAERS Safety Report 25751092 (Version 1)
Quarter: 2025Q3

REPORT INFORMATION
  Report Type: Spontaneous
  Country: US (occurrence: None)
  Receive Date: 20250830
  Receipt Date: 20250830
  Transmission Date: 20251021
  Serious: Yes (Hospitalization)
  Sender: FDA-CTU
  Company Number: None

PATIENT
  Age: 61 Year
  Sex: Male
  Weight: 152 kg

DRUGS (4)
  1. FLUOROURACIL [Suspect]
     Active Substance: FLUOROURACIL
     Dates: start: 20250820
  2. LEUCOVORIN CALCIUM [Suspect]
     Active Substance: LEUCOVORIN CALCIUM
     Dates: start: 20250818
  3. NIVOLUMAB [Suspect]
     Active Substance: NIVOLUMAB
     Dates: start: 20250818
  4. ELOXATIN [Suspect]
     Active Substance: OXALIPLATIN
     Dates: start: 20250818

REACTIONS (13)
  - Fatigue [None]
  - Dyspnoea [None]
  - Loss of consciousness [None]
  - Troponin abnormal [None]
  - Blood glucose increased [None]
  - Pulmonary embolism [None]
  - Electrocardiogram ST-T segment abnormal [None]
  - Lung opacity [None]
  - Pneumonia [None]
  - Dizziness [None]
  - Orthostatic hypotension [None]
  - Deep vein thrombosis [None]
  - Urinary retention [None]

NARRATIVE: CASE EVENT DATE: 20250821
